FAERS Safety Report 23976227 (Version 2)
Quarter: 2024Q2

REPORT INFORMATION
  Report Type: Spontaneous
  Country: CZ (occurrence: CZ)
  Receive Date: 20240614
  Receipt Date: 20240625
  Transmission Date: 20240716
  Serious: Yes (Other)
  Sender: FDA-Public Use
  Company Number: CZ-TEVA-VS-3206454

PATIENT
  Age: 41 Year
  Sex: Female

DRUGS (11)
  1. BRENTUXIMAB VEDOTIN [Suspect]
     Active Substance: BRENTUXIMAB VEDOTIN
     Indication: Chemotherapy
     Dosage: CHEPA REGIMEN
     Route: 065
     Dates: start: 20230330, end: 20230724
  2. CYTARABINE [Suspect]
     Active Substance: CYTARABINE
     Indication: Chemotherapy
     Dosage: HIGH-DOSE BEAM
     Route: 065
     Dates: start: 20230906
  3. CARMUSTINE [Suspect]
     Active Substance: CARMUSTINE
     Indication: Chemotherapy
     Dosage: HIGH-DOSE BEAM
     Route: 065
     Dates: start: 20230906
  4. CYCLOPHOSPHAMIDE [Suspect]
     Active Substance: CYCLOPHOSPHAMIDE
     Indication: Chemotherapy
     Dosage: CHEPA REGIMEN
     Route: 065
     Dates: start: 20230330, end: 20230724
  5. DOXORUBICIN [Suspect]
     Active Substance: DOXORUBICIN
     Indication: Chemotherapy
     Dosage: 50.000MG/M2
     Route: 065
     Dates: start: 20230330, end: 20230724
  6. ETOPOSIDE [Suspect]
     Active Substance: ETOPOSIDE
     Dosage: 100 MG
     Route: 065
     Dates: start: 20230325
  7. ETOPOSIDE [Suspect]
     Active Substance: ETOPOSIDE
     Indication: Chemotherapy
     Dosage: CHEPA REGIMEN
     Route: 065
     Dates: start: 20230330, end: 20230724
  8. ETOPOSIDE [Suspect]
     Active Substance: ETOPOSIDE
     Dosage: HIGH-DOSE BEAM CHEMOTHERAPY
     Route: 065
     Dates: start: 20230906
  9. FILGRASTIM [Suspect]
     Active Substance: FILGRASTIM
     Indication: Chemotherapy
     Dosage: 6 CYCLES OF CHEPA
     Route: 065
     Dates: end: 20230724
  10. MELPHALAN [Suspect]
     Active Substance: MELPHALAN
     Indication: Chemotherapy
     Dosage: HIGH-DOSE BEAM
     Route: 065
     Dates: start: 20230906
  11. PREDNISONE [Suspect]
     Active Substance: PREDNISONE
     Indication: Chemotherapy
     Dosage: CHEPA REGIMEN P.O
     Route: 048
     Dates: start: 20230330, end: 20230724

REACTIONS (2)
  - Peripheral sensorimotor neuropathy [Unknown]
  - Stomatitis [Unknown]
